FAERS Safety Report 4717108-3 (Version None)
Quarter: 2005Q3

REPORT INFORMATION
  Report Type: 
  Country: None (occurrence: None)
  Receive Date: 20050719
  Receipt Date: 20050714
  Transmission Date: 20060218
  Serious: Yes (Other)
  Sender: FDA-Public Use
  Company Number: US-BRISTOL-MYERS SQUIBB COMPANY-13037742

PATIENT
  Age: 49 Year
  Sex: Male
  Weight: 77 kg

DRUGS (3)
  1. TEQUIN [Suspect]
     Indication: PHARYNGITIS
     Route: 048
     Dates: start: 20050705, end: 20050712
  2. ACCUPRIL [Concomitant]
  3. ACTOS [Concomitant]

REACTIONS (1)
  - BLOOD GLUCOSE INCREASED [None]
